FAERS Safety Report 13116879 (Version 2)
Quarter: 2017Q2

REPORT INFORMATION
  Report Type: Spontaneous
  Country: US (occurrence: US)
  Receive Date: 20170116
  Receipt Date: 20170404
  Transmission Date: 20170830
  Serious: No
  Sender: FDA-Public Use
  Company Number: US-PFIZER INC-2017016457

PATIENT
  Age: 58 Year
  Sex: Female
  Weight: 65 kg

DRUGS (2)
  1. FEMARA [Concomitant]
     Active Substance: LETROZOLE
     Dosage: UNK UNK, 1X/DAY (2.5)
     Route: 048
     Dates: start: 201607
  2. IBRANCE [Suspect]
     Active Substance: PALBOCICLIB
     Indication: LUNG NEOPLASM MALIGNANT
     Dosage: 125 MG, CYCLIC (DAILY FOR 21 DAYS)
     Route: 048
     Dates: start: 20160912

REACTIONS (3)
  - Diarrhoea [Recovered/Resolved]
  - Viral upper respiratory tract infection [Recovering/Resolving]
  - Product use in unapproved indication [Unknown]

NARRATIVE: CASE EVENT DATE: 201701
